FAERS Safety Report 4785526-3 (Version None)
Quarter: 2005Q3

REPORT INFORMATION
  Report Type: 
  Country: None (occurrence: None)
  Receive Date: 20050929
  Receipt Date: 20050614
  Transmission Date: 20060218
  Serious: Yes (Other)
  Sender: FDA-Public Use
  Company Number: 11530

PATIENT
  Age: 26 Year
  Sex: Female

DRUGS (2)
  1. MITOXANTRONE [Suspect]
     Indication: BREAST CANCER
     Dosage: 210 MG/M2 TOTAL
  2. VINORELBINE [Suspect]
     Indication: BREAST CANCER
     Dosage: 490 MG/M2 TOTAL

REACTIONS (1)
  - ACUTE PROMYELOCYTIC LEUKAEMIA [None]
